FAERS Safety Report 10544352 (Version 1)
Quarter: 2014Q4

REPORT INFORMATION
  Report Type: Spontaneous
  Country: US (occurrence: US)
  Receive Date: 20141027
  Receipt Date: 20141027
  Transmission Date: 20150529
  Serious: No
  Sender: FDA-Public Use
  Company Number: US-GILEAD-2014-0119803

PATIENT
  Sex: Female

DRUGS (1)
  1. RANEXA [Suspect]
     Active Substance: RANOLAZINE
     Indication: CARDIAC FAILURE
     Dosage: 500 MG, BID
     Route: 065
     Dates: start: 201410

REACTIONS (2)
  - Blood creatine increased [Recovering/Resolving]
  - Oedema [Recovering/Resolving]
